FAERS Safety Report 7203402-3 (Version None)
Quarter: 2010Q4

REPORT INFORMATION
  Report Type: 
  Country: None (occurrence: None)
  Receive Date: 20101230
  Receipt Date: 20101126
  Transmission Date: 20110411
  Serious: Yes (Hospitalization)
  Sender: FDA-Public Use
  Company Number: DE-PFIZER INC-2010158258

PATIENT
  Age: 61 Year
  Sex: Male
  Weight: 100 kg

DRUGS (3)
  1. IBUPROFEN [Suspect]
  2. IBUPROFEN ^RATIOPHARM^ [Suspect]
     Indication: PAIN
     Dosage: 600 MG, 1X/DAY
     Route: 048
     Dates: start: 20101110, end: 20101111
  3. NOVAMINSULFON-RATIOPHARM [Suspect]
     Indication: PAIN
     Dosage: 20 GTT, 1X/DAY
     Route: 048
     Dates: start: 20101111, end: 20101111

REACTIONS (1)
  - ANAPHYLACTIC REACTION [None]
